FAERS Safety Report 21732654 (Version 1)
Quarter: 2022Q4

REPORT INFORMATION
  Report Type: Spontaneous
  Country: US (occurrence: US)
  Receive Date: 20221215
  Receipt Date: 20221215
  Transmission Date: 20230113
  Serious: Yes (Other)
  Sender: FDA-Public Use
  Company Number: US-APOTEX-2022AP016720

PATIENT
  Age: 38 Year
  Sex: Female

DRUGS (2)
  1. KETOROLAC [Suspect]
     Active Substance: KETOROLAC TROMETHAMINE
     Indication: Post procedural inflammation
     Dosage: 15 MILLIGRAM (3 DOSES)
     Route: 042
  2. IBUPROFEN [Suspect]
     Active Substance: IBUPROFEN
     Indication: Post procedural inflammation
     Dosage: 800 MILLIGRAM, Q.6H
     Route: 048

REACTIONS (1)
  - Acute kidney injury [Unknown]
